FAERS Safety Report 18923579 (Version 1)
Quarter: 2021Q1

REPORT INFORMATION
  Report Type: Spontaneous
  Country: DE (occurrence: DE)
  Receive Date: 20210222
  Receipt Date: 20210222
  Transmission Date: 20210420
  Serious: Yes (Life-Threatening, Other)
  Sender: FDA-Public Use
  Company Number: DE-OTSUKA-2021_005269

PATIENT
  Sex: Male

DRUGS (8)
  1. TREOSULFAN [Suspect]
     Active Substance: TREOSULFAN
     Indication: MYELOBLAST PRESENT
     Dosage: UNK
     Route: 065
  2. RUXOLITINIB [Suspect]
     Active Substance: RUXOLITINIB
     Indication: GRAFT VERSUS HOST DISEASE
     Dosage: UNK
     Route: 065
  3. TREOSULFAN [Suspect]
     Active Substance: TREOSULFAN
     Indication: BONE MARROW CONDITIONING REGIMEN
  4. BUSULFAN. [Suspect]
     Active Substance: BUSULFAN
     Indication: MYELOBLAST PRESENT
     Dosage: UNK
     Route: 065
  5. BUSULFAN. [Suspect]
     Active Substance: BUSULFAN
     Indication: BONE MARROW CONDITIONING REGIMEN
  6. THIOTEPA. [Suspect]
     Active Substance: THIOTEPA
     Indication: MYELOBLAST PRESENT
     Dosage: UNK
     Route: 065
  7. THIOTEPA. [Suspect]
     Active Substance: THIOTEPA
     Indication: BONE MARROW CONDITIONING REGIMEN
  8. TACROLIMUS. [Suspect]
     Active Substance: TACROLIMUS
     Indication: GRAFT VERSUS HOST DISEASE
     Dosage: UNK
     Route: 065

REACTIONS (1)
  - Pneumatosis intestinalis [Recovered/Resolved]
